FAERS Safety Report 11880144 (Version 1)
Quarter: 2015Q4

REPORT INFORMATION
  Report Type: Spontaneous
  Country: US (occurrence: US)
  Receive Date: 20151230
  Receipt Date: 20151230
  Transmission Date: 20160305
  Serious: Yes (Other)
  Sender: FDA-Public Use
  Company Number: US-B.I. PHARMACEUTICALS,INC./RIDGEFIELD-2015-BI-72107BP

PATIENT
  Sex: Male
  Weight: 82 kg

DRUGS (1)
  1. AGGRENOX [Suspect]
     Active Substance: ASPIRIN\DIPYRIDAMOLE
     Indication: CEREBROVASCULAR ACCIDENT PROPHYLAXIS
     Dosage: 1 ANZ
     Route: 048
     Dates: end: 2015

REACTIONS (3)
  - Suicidal ideation [Unknown]
  - Eating disorder [Unknown]
  - Constipation [Not Recovered/Not Resolved]
